FAERS Safety Report 16601500 (Version 1)
Quarter: 2019Q3

REPORT INFORMATION
  Report Type: Spontaneous
  Country: PL (occurrence: PL)
  Receive Date: 20190719
  Receipt Date: 20190719
  Transmission Date: 20191004
  Serious: Yes (Hospitalization)
  Sender: FDA-Public Use
  Company Number: GXKR2006PL03646

PATIENT
  Age: 9 Year
  Sex: Male

DRUGS (2)
  1. ALLOPURINOL. [Suspect]
     Active Substance: ALLOPURINOL
     Indication: HYPERURICAEMIA
     Dosage: 20-30 MG/KG
     Route: 065
  2. ALLOPURINOL. [Suspect]
     Active Substance: ALLOPURINOL
     Indication: HYPOXANTHINE-GUANINE PHOSPHORIBOSYL TRANSFERASE DEFICIENCY
     Dosage: 8 MG/KG, UNK
     Route: 065

REACTIONS (8)
  - Acute kidney injury [Recovered/Resolved]
  - Calculus urinary [Recovering/Resolving]
  - Anuria [Recovered/Resolved]
  - Oedema peripheral [Recovered/Resolved]
  - Blood creatinine increased [Recovered/Resolved]
  - Blood urea increased [Recovered/Resolved]
  - Abdominal pain [Recovered/Resolved]
  - Prescribed overdose [Recovered/Resolved]
